FAERS Safety Report 23198024 (Version 1)
Quarter: 2023Q4

REPORT INFORMATION
  Report Type: Spontaneous
  Country: US (occurrence: None)
  Receive Date: 20231117
  Receipt Date: 20231117
  Transmission Date: 20240109
  Serious: Yes (Hospitalization)
  Sender: FDA-Public Use
  Company Number: None

PATIENT
  Sex: Female

DRUGS (1)
  1. OPSUMIT [Suspect]
     Active Substance: MACITENTAN
     Indication: Pulmonary arterial hypertension
     Dosage: FREQUENCY : DAILY;?
     Route: 048
     Dates: start: 202307

REACTIONS (12)
  - Pain [None]
  - Heart rate increased [None]
  - Arthralgia [None]
  - Pain in extremity [None]
  - Back pain [None]
  - Pain [None]
  - Cerebrovascular accident [None]
  - Complication associated with device [None]
  - Device physical property issue [None]
  - Cardiac arrest [None]
  - Feeling abnormal [None]
  - Monoplegia [None]
